FAERS Safety Report 5958937-8 (Version None)
Quarter: 2008Q4

REPORT INFORMATION
  Report Type: 
  Country: None (occurrence: None)
  Receive Date: 20081107
  Receipt Date: 20081103
  Transmission Date: 20090506
  Serious: Yes (Hospitalization)
  Sender: FDA-Public Use
  Company Number: 200711926

PATIENT
  Age: 56 Year
  Sex: Female

DRUGS (9)
  1. VIVAGLOBIN [Suspect]
     Indication: PRIMARY IMMUNODEFICIENCY SYNDROME
     Dosage: SC
     Route: 058
  2. PROVENTIL [Concomitant]
  3. ADVAIR HFA [Concomitant]
  4. GLUCOPHAGE [Concomitant]
  5. ACTOS [Concomitant]
  6. LIPITOR [Concomitant]
  7. PRINIVIL [Concomitant]
  8. BACTRIM DS [Concomitant]
  9. TESTOSTERONE [Concomitant]

REACTIONS (3)
  - ARTERIOSCLEROSIS CORONARY ARTERY [None]
  - PNEUMONIA BACTERIAL [None]
  - RENAL CYST [None]
